FAERS Safety Report 25533601 (Version 1)
Quarter: 2025Q3

REPORT INFORMATION
  Report Type: Spontaneous
  Country: US (occurrence: US)
  Receive Date: 20250709
  Receipt Date: 20250709
  Transmission Date: 20251021
  Serious: No
  Sender: MYLAN
  Company Number: US-MYLANLABS-2025M1055826

PATIENT
  Sex: Female

DRUGS (52)
  1. CELEBREX [Suspect]
     Active Substance: CELECOXIB
     Indication: Product used for unknown indication
  2. CELEBREX [Suspect]
     Active Substance: CELECOXIB
     Route: 065
  3. CELEBREX [Suspect]
     Active Substance: CELECOXIB
     Route: 065
  4. CELEBREX [Suspect]
     Active Substance: CELECOXIB
  5. AMOXICILLIN [Concomitant]
     Active Substance: AMOXICILLIN
  6. AMOXICILLIN [Concomitant]
     Active Substance: AMOXICILLIN
     Route: 065
  7. AMOXICILLIN [Concomitant]
     Active Substance: AMOXICILLIN
     Route: 065
  8. AMOXICILLIN [Concomitant]
     Active Substance: AMOXICILLIN
  9. BIMATOPROST [Concomitant]
     Active Substance: BIMATOPROST
  10. BIMATOPROST [Concomitant]
     Active Substance: BIMATOPROST
     Route: 065
  11. BIMATOPROST [Concomitant]
     Active Substance: BIMATOPROST
     Route: 065
  12. BIMATOPROST [Concomitant]
     Active Substance: BIMATOPROST
  13. CHOLECALCIFEROL [Concomitant]
     Active Substance: CHOLECALCIFEROL
  14. CHOLECALCIFEROL [Concomitant]
     Active Substance: CHOLECALCIFEROL
     Route: 065
  15. CHOLECALCIFEROL [Concomitant]
     Active Substance: CHOLECALCIFEROL
     Route: 065
  16. CHOLECALCIFEROL [Concomitant]
     Active Substance: CHOLECALCIFEROL
  17. CLOTRIMAZOLE [Concomitant]
     Active Substance: CLOTRIMAZOLE
  18. CLOTRIMAZOLE [Concomitant]
     Active Substance: CLOTRIMAZOLE
     Route: 065
  19. CLOTRIMAZOLE [Concomitant]
     Active Substance: CLOTRIMAZOLE
     Route: 065
  20. CLOTRIMAZOLE [Concomitant]
     Active Substance: CLOTRIMAZOLE
  21. EZETIMIBE [Concomitant]
     Active Substance: EZETIMIBE
  22. EZETIMIBE [Concomitant]
     Active Substance: EZETIMIBE
     Route: 065
  23. EZETIMIBE [Concomitant]
     Active Substance: EZETIMIBE
     Route: 065
  24. EZETIMIBE [Concomitant]
     Active Substance: EZETIMIBE
  25. LEFLUNOMIDE [Concomitant]
     Active Substance: LEFLUNOMIDE
  26. LEFLUNOMIDE [Concomitant]
     Active Substance: LEFLUNOMIDE
     Route: 065
  27. LEFLUNOMIDE [Concomitant]
     Active Substance: LEFLUNOMIDE
     Route: 065
  28. LEFLUNOMIDE [Concomitant]
     Active Substance: LEFLUNOMIDE
  29. LISINOPRIL [Concomitant]
     Active Substance: LISINOPRIL
  30. LISINOPRIL [Concomitant]
     Active Substance: LISINOPRIL
     Route: 065
  31. LISINOPRIL [Concomitant]
     Active Substance: LISINOPRIL
     Route: 065
  32. LISINOPRIL [Concomitant]
     Active Substance: LISINOPRIL
  33. MELOXICAM [Concomitant]
     Active Substance: MELOXICAM
  34. MELOXICAM [Concomitant]
     Active Substance: MELOXICAM
     Route: 065
  35. MELOXICAM [Concomitant]
     Active Substance: MELOXICAM
     Route: 065
  36. MELOXICAM [Concomitant]
     Active Substance: MELOXICAM
  37. METFORMIN [Concomitant]
     Active Substance: METFORMIN HYDROCHLORIDE
  38. METFORMIN [Concomitant]
     Active Substance: METFORMIN HYDROCHLORIDE
     Route: 065
  39. METFORMIN [Concomitant]
     Active Substance: METFORMIN HYDROCHLORIDE
     Route: 065
  40. METFORMIN [Concomitant]
     Active Substance: METFORMIN HYDROCHLORIDE
  41. PRAVASTATIN [Concomitant]
     Active Substance: PRAVASTATIN
  42. PRAVASTATIN [Concomitant]
     Active Substance: PRAVASTATIN
     Route: 065
  43. PRAVASTATIN [Concomitant]
     Active Substance: PRAVASTATIN
     Route: 065
  44. PRAVASTATIN [Concomitant]
     Active Substance: PRAVASTATIN
  45. PREGABALIN [Concomitant]
     Active Substance: PREGABALIN
  46. PREGABALIN [Concomitant]
     Active Substance: PREGABALIN
     Route: 065
  47. PREGABALIN [Concomitant]
     Active Substance: PREGABALIN
     Route: 065
  48. PREGABALIN [Concomitant]
     Active Substance: PREGABALIN
  49. SODIUM FLUORIDE [Concomitant]
     Active Substance: SODIUM FLUORIDE
  50. SODIUM FLUORIDE [Concomitant]
     Active Substance: SODIUM FLUORIDE
     Route: 065
  51. SODIUM FLUORIDE [Concomitant]
     Active Substance: SODIUM FLUORIDE
     Route: 065
  52. SODIUM FLUORIDE [Concomitant]
     Active Substance: SODIUM FLUORIDE

REACTIONS (1)
  - Rash [Unknown]
